FAERS Safety Report 14740755 (Version 2)
Quarter: 2018Q2

REPORT INFORMATION
  Report Type: Report from Study
  Country: CA (occurrence: CA)
  Receive Date: 20180410
  Receipt Date: 20180413
  Transmission Date: 20180711
  Serious: Yes (Other)
  Sender: FDA-Public Use
  Company Number: CA-JNJFOC-20180405856

PATIENT
  Sex: Male
  Weight: 90 kg

DRUGS (1)
  1. STELARA [Suspect]
     Active Substance: USTEKINUMAB
     Indication: CROHN^S DISEASE
     Dosage: STRENGTH = 90 MG
     Route: 058
     Dates: start: 20171108

REACTIONS (3)
  - General physical health deterioration [Unknown]
  - Abdominal pain [Unknown]
  - Cerebrovascular accident [Unknown]
